FAERS Safety Report 9632169 (Version 2)
Quarter: 2013Q4

REPORT INFORMATION
  Report Type: Spontaneous
  Country: US (occurrence: US)
  Receive Date: 20131018
  Receipt Date: 20131018
  Transmission Date: 20140711
  Serious: Yes (Hospitalization, Other)
  Sender: FDA-Public Use
  Company Number: US-TAKEDA-0229192

PATIENT
  Sex: 0

DRUGS (5)
  1. PROTONIX [Suspect]
     Indication: ABDOMINAL DISCOMFORT
     Dosage: 40 MG, ONE OR TWO TABLETS DAILY
     Dates: start: 2005
  2. PREVACID [Suspect]
     Indication: GASTRIC DISORDER
  3. TYLENOL [Concomitant]
     Indication: ARTHRITIS
     Dosage: UNK
  4. TYLENOL [Concomitant]
     Indication: MIGRAINE
  5. ACETYLSALICYLIC [Concomitant]
     Indication: CARDIAC DISORDER
     Dosage: UNK

REACTIONS (15)
  - Myocardial infarction [Unknown]
  - Cardiac disorder [Unknown]
  - Heart rate increased [Unknown]
  - Chest pain [Unknown]
  - Palpitations [Unknown]
  - Drug ineffective [Unknown]
  - Decreased appetite [Unknown]
  - Nausea [Unknown]
  - Flatulence [Unknown]
  - Migraine [Unknown]
  - Arthritis [Unknown]
  - Eating disorder [Unknown]
  - Pain [Unknown]
  - Headache [Unknown]
  - Abdominal discomfort [Unknown]
